FAERS Safety Report 19078345 (Version 1)
Quarter: 2021Q1

REPORT INFORMATION
  Report Type: Spontaneous
  Country: ES (occurrence: ES)
  Receive Date: 20210331
  Receipt Date: 20210331
  Transmission Date: 20210420
  Serious: Yes (Hospitalization)
  Sender: FDA-Public Use
  Company Number: ES-CISBIO-2021000181

PATIENT
  Age: 55 Year

DRUGS (2)
  1. PULMOCIS [Suspect]
     Active Substance: TECHNETIUM TC-99M ALBUMIN AGGREGATED
     Route: 042
     Dates: start: 20210318, end: 20210318
  2. TEKCIS 2?50 GBQ [SODIUM PERTECHNETATE (99M TC)] [Suspect]
     Active Substance: TECHNETIUM TC-99M SODIUM PERTECHNETATE
     Route: 042
     Dates: start: 20210318, end: 20210318

REACTIONS (4)
  - Loss of consciousness [Recovered/Resolved]
  - Product use in unapproved indication [Recovered/Resolved]
  - Disorientation [Recovered/Resolved]
  - Microembolism [Recovered/Resolved]

NARRATIVE: CASE EVENT DATE: 20210318
